FAERS Safety Report 19097562 (Version 3)
Quarter: 2021Q2

REPORT INFORMATION
  Report Type: Report from Study
  Country: None (occurrence: US)
  Receive Date: 20210406
  Receipt Date: 20210622
  Transmission Date: 20210717
  Serious: Yes (Other)
  Sender: FDA-Public Use
  Company Number: US-ABBVIE-20K-163-3584328-00

PATIENT
  Sex: Male

DRUGS (1)
  1. RINVOQ [Suspect]
     Active Substance: UPADACITINIB
     Indication: RHEUMATOID ARTHRITIS
     Route: 048

REACTIONS (7)
  - Ligament sprain [Recovering/Resolving]
  - Sciatica [Not Recovered/Not Resolved]
  - Cataract [Recovered/Resolved]
  - Abdominal pain upper [Not Recovered/Not Resolved]
  - Tooth infection [Recovering/Resolving]
  - Gastrooesophageal reflux disease [Not Recovered/Not Resolved]
  - Impaired healing [Not Recovered/Not Resolved]
